FAERS Safety Report 9768901 (Version 1)
Quarter: 2013Q4

REPORT INFORMATION
  Report Type: Spontaneous
  Country: US (occurrence: None)
  Receive Date: 20131217
  Receipt Date: 20131217
  Transmission Date: 20140711
  Serious: Yes (Disabling)
  Sender: FDA-Public Use
  Company Number: None

PATIENT
  Age: 48 Year
  Sex: Female
  Weight: 56.7 kg

DRUGS (1)
  1. VERAPAMIL [Suspect]
     Indication: MIGRAINE
     Dates: start: 20110801, end: 20131119

REACTIONS (3)
  - Middle insomnia [None]
  - Paraesthesia [None]
  - Chest pain [None]
